FAERS Safety Report 19843618 (Version 2)
Quarter: 2021Q4

REPORT INFORMATION
  Report Type: Spontaneous
  Country: US (occurrence: US)
  Receive Date: 20210917
  Receipt Date: 20211016
  Transmission Date: 20220304
  Serious: Yes (Hospitalization)
  Sender: FDA-Public Use
  Company Number: US-DRREDDYS-SPO/USA/21/0139864

PATIENT
  Age: 55 Year
  Sex: Female

DRUGS (3)
  1. TERBINAFINE [Suspect]
     Active Substance: TERBINAFINE
     Indication: Onychomycosis
  2. ALENDRONIC ACID [Concomitant]
     Active Substance: ALENDRONIC ACID
     Indication: Osteopenia
  3. CICLOPIROX LACQUR [Concomitant]
     Indication: Onychomycosis

REACTIONS (2)
  - Drug-induced liver injury [Recovered/Resolved]
  - Acute generalised exanthematous pustulosis [Recovered/Resolved]
